FAERS Safety Report 15702623 (Version 1)
Quarter: 2018Q4

REPORT INFORMATION
  Report Type: Spontaneous
  Country: US (occurrence: US)
  Receive Date: 20181210
  Receipt Date: 20181210
  Transmission Date: 20190205
  Serious: No
  Sender: FDA-Public Use
  Company Number: US-KYOWAKIRIN-2018BKK006888

PATIENT

DRUGS (1)
  1. SANCUSO [Suspect]
     Active Substance: GRANISETRON
     Indication: PROPHYLAXIS OF NAUSEA AND VOMITING
     Dosage: 1 PATCH ON NIGHT OF CHEMO AND LEAVE ON FOR 7 DAYS
     Route: 061

REACTIONS (2)
  - Dermatitis contact [Unknown]
  - Inappropriate schedule of product administration [Recovered/Resolved]
